FAERS Safety Report 8492745-1 (Version None)
Quarter: 2012Q3

REPORT INFORMATION
  Report Type: 
  Country: None (occurrence: None)
  Receive Date: 20120706
  Receipt Date: 20120627
  Transmission Date: 20120928
  Serious: Yes (Other)
  Sender: FDA-Public Use
  Company Number: US-VERTEX PHARMACEUTICALS INC.-AE-2012-008358

PATIENT
  Sex: Female
  Weight: 84.444 kg

DRUGS (13)
  1. RIBASPHERE [Concomitant]
     Indication: HEPATITIS C
     Route: 048
     Dates: start: 20120310
  2. SPIRONOLACTONE [Concomitant]
  3. DICYCLOMINE [Concomitant]
     Indication: IRRITABLE BOWEL SYNDROME
     Route: 048
  4. CLONIDINE [Concomitant]
     Indication: HYPERTENSION
     Route: 048
  5. PEGASYS [Concomitant]
     Indication: HEPATITIS C
     Route: 058
     Dates: start: 20120309
  6. NORCO [Concomitant]
     Indication: PAIN
     Route: 048
  7. INCIVEK [Suspect]
     Indication: HEPATITIS C
     Route: 048
     Dates: start: 20120310, end: 20120602
  8. ATARAX [Concomitant]
     Route: 048
  9. DOCUSATE SODIUM/ DSS [Concomitant]
     Route: 048
  10. CITALOPRAM HYDROBROMIDE [Concomitant]
     Route: 048
  11. RISPERIDONE [Concomitant]
     Route: 048
  12. NIFEDIAC [Concomitant]
     Indication: HYPERTENSION
     Route: 048
  13. DEXILANT [Concomitant]
     Route: 048

REACTIONS (1)
  - RASH GENERALISED [None]
